FAERS Safety Report 10704006 (Version 1)
Quarter: 2015Q1

REPORT INFORMATION
  Report Type: Report from Study
  Country: US (occurrence: US)
  Receive Date: 20150112
  Receipt Date: 20150112
  Transmission Date: 20150721
  Serious: Yes (Death, Other)
  Sender: FDA-Public Use
  Company Number: US-ASTELLAS-2015US000830

PATIENT
  Age: 57 Year
  Sex: Female

DRUGS (10)
  1. IRINOTECAN HYDROCHLORIDE. [Concomitant]
     Active Substance: IRINOTECAN HYDROCHLORIDE
     Indication: PRODUCT USED FOR UNKNOWN INDICATION
     Route: 065
  2. IRINOTECAN [Concomitant]
     Active Substance: IRINOTECAN
     Indication: PRODUCT USED FOR UNKNOWN INDICATION
     Dosage: UNK, UNKNOWN FREQ.
     Route: 042
  3. CISPLATIN. [Concomitant]
     Active Substance: CISPLATIN
     Indication: PRODUCT USED FOR UNKNOWN INDICATION
     Route: 065
  4. ERLOTINIB [Suspect]
     Active Substance: ERLOTINIB
     Indication: PANCREATIC CARCINOMA
     Route: 048
     Dates: start: 20120911
  5. AVASTIN [Suspect]
     Active Substance: BEVACIZUMAB
     Indication: PANCREATIC CARCINOMA
     Route: 065
  6. GEMZAR [Concomitant]
     Active Substance: GEMCITABINE HYDROCHLORIDE
     Indication: PRODUCT USED FOR UNKNOWN INDICATION
     Route: 065
  7. DEXAMETHASONE. [Concomitant]
     Active Substance: DEXAMETHASONE
     Indication: PRODUCT USED FOR UNKNOWN INDICATION
     Route: 042
  8. XELODA [Suspect]
     Active Substance: CAPECITABINE
     Indication: PANCREATIC CARCINOMA
     Route: 048
     Dates: start: 20110428
  9. DICYCLOVERINE HYDROCHLORIDE [Concomitant]
     Active Substance: DICYCLOMINE HYDROCHLORIDE
     Indication: PRODUCT USED FOR UNKNOWN INDICATION
     Dosage: UNK UNK, UNKNOWN FREQ.
     Route: 065
  10. PALONOSETRON [Concomitant]
     Active Substance: PALONOSETRON
     Indication: PRODUCT USED FOR UNKNOWN INDICATION
     Dosage: UNK UNK, UNKNOWN FREQ.
     Route: 065

REACTIONS (5)
  - Muscle spasms [Unknown]
  - Rash [Unknown]
  - Death [Fatal]
  - Malignant neoplasm progression [Unknown]
  - Mass [Unknown]

NARRATIVE: CASE EVENT DATE: 20120928
